FAERS Safety Report 12605368 (Version 2)
Quarter: 2017Q3

REPORT INFORMATION
  Report Type: Spontaneous
  Country: US (occurrence: US)
  Receive Date: 20160729
  Receipt Date: 20170720
  Transmission Date: 20171127
  Serious: Yes (Other)
  Sender: FDA-Public Use
  Company Number: US-TEVA-671741USA

PATIENT
  Sex: Female

DRUGS (7)
  1. LYRICA [Suspect]
     Active Substance: PREGABALIN
     Indication: DIABETIC NEUROPATHY
     Dosage: 75 MILLIGRAM DAILY;
     Route: 065
     Dates: start: 20141231, end: 20150115
  2. SYNTHROID [Concomitant]
     Active Substance: LEVOTHYROXINE SODIUM
     Dates: start: 2004
  3. FLUCONAZOLE. [Suspect]
     Active Substance: FLUCONAZOLE
     Dates: start: 20141230, end: 20150115
  4. CHLORHEXIDINE [Concomitant]
     Active Substance: CHLORHEXIDINE
     Dates: start: 20150215, end: 20160315
  5. OXYCODONE HYDROCHLORIDE. [Concomitant]
     Active Substance: OXYCODONE HYDROCHLORIDE
     Dosage: 5MG/5ML
     Dates: start: 20140101
  6. HUMALOG [Concomitant]
     Active Substance: INSULIN LISPRO
     Dates: start: 1967
  7. FENTANYL. [Concomitant]
     Active Substance: FENTANYL
     Dates: start: 20141230, end: 20150106

REACTIONS (1)
  - Hepatic enzyme increased [Recovering/Resolving]
